FAERS Safety Report 18626965 (Version 1)
Quarter: 2020Q4

REPORT INFORMATION
  Report Type: Other
  Country: GR (occurrence: GR)
  Receive Date: 20201217
  Receipt Date: 20201217
  Transmission Date: 20210114
  Serious: Yes (Other)
  Sender: FDA-Public Use
  Company Number: GR-VGYAAN PHARMACEUTICALS LLC-2103103

PATIENT
  Age: 52 Year
  Sex: Male

DRUGS (1)
  1. CLOMIPRAMINE HYDROCHLORIDE. [Suspect]
     Active Substance: CLOMIPRAMINE HYDROCHLORIDE
     Indication: TILT TABLE TEST
     Route: 042

REACTIONS (1)
  - Atrial fibrillation [Recovered/Resolved]
